FAERS Safety Report 10023780 (Version 1)
Quarter: 2014Q1

REPORT INFORMATION
  Report Type: Spontaneous
  Country: CH (occurrence: None)
  Receive Date: 20140115
  Receipt Date: 20140115
  Transmission Date: 20141002
  Serious: Yes (Other)
  Sender: FDA-Public Use
  Company Number: 20130440

PATIENT
  Age: 24 Year
  Sex: Female
  Weight: 90 kg

DRUGS (1)
  1. FERINJECT [Suspect]
     Indication: IRON DEFICIENCY
     Route: 041
     Dates: start: 20130521, end: 20130521

REACTIONS (6)
  - Dyspnoea [None]
  - Abdominal pain [None]
  - Dysgeusia [None]
  - Bronchospasm [None]
  - Unevaluable event [None]
  - Maternal exposure during pregnancy [None]
